FAERS Safety Report 6997715-8 (Version None)
Quarter: 2010Q3

REPORT INFORMATION
  Report Type: 
  Country: None (occurrence: None)
  Receive Date: 20100918
  Receipt Date: 20091119
  Transmission Date: 20110219
  Serious: No
  Sender: FDA-Public Use
  Company Number: US-WYE-H12297609

PATIENT
  Sex: Female

DRUGS (7)
  1. PRISTIQ [Suspect]
     Route: 048
     Dates: start: 20090501, end: 20090901
  2. PRISTIQ [Suspect]
     Route: 048
     Dates: start: 20090901
  3. BACLOFEN [Concomitant]
  4. LYRICA [Concomitant]
  5. KLONOPIN [Concomitant]
  6. OXYCODONE HCL [Concomitant]
  7. FENTANYL CITRATE [Concomitant]

REACTIONS (1)
  - SOMNOLENCE [None]
